FAERS Safety Report 6097411-8 (Version None)
Quarter: 2009Q1

REPORT INFORMATION
  Report Type: 
  Country: None (occurrence: None)
  Receive Date: 20090227
  Receipt Date: 20080411
  Transmission Date: 20090719
  Serious: No
  Sender: FDA-Public Use
  Company Number: A0715798A

PATIENT
  Age: 17 Year
  Sex: Male
  Weight: 96 kg

DRUGS (1)
  1. IMITREX [Suspect]
     Indication: MIGRAINE
     Dosage: 6MG SINGLE DOSE
     Route: 030
     Dates: start: 20080314

REACTIONS (1)
  - INCORRECT ROUTE OF DRUG ADMINISTRATION [None]
